FAERS Safety Report 18519249 (Version 3)
Quarter: 2020Q4

REPORT INFORMATION
  Report Type: Report from Study
  Country: None (occurrence: US)
  Receive Date: 20201119
  Receipt Date: 20201215
  Transmission Date: 20210114
  Serious: Yes (Other)
  Sender: FDA-Public Use
  Company Number: US-ABBVIE-20K-163-3645304-00

PATIENT
  Age: 68 Year
  Sex: Female

DRUGS (1)
  1. RINVOQ [Suspect]
     Active Substance: UPADACITINIB
     Indication: RHEUMATOID ARTHRITIS
     Route: 048
     Dates: start: 2020, end: 20201206

REACTIONS (9)
  - Fatigue [Recovering/Resolving]
  - Vision blurred [Recovering/Resolving]
  - Pyrexia [Recovered/Resolved]
  - Post procedural complication [Unknown]
  - Urinary tract infection [Not Recovered/Not Resolved]
  - Somnolence [Recovering/Resolving]
  - Lethargy [Unknown]
  - Tinnitus [Recovering/Resolving]
  - Mental disorder [Recovering/Resolving]

NARRATIVE: CASE EVENT DATE: 202010
